FAERS Safety Report 5744284-6 (Version None)
Quarter: 2008Q2

REPORT INFORMATION
  Report Type: 
  Country: None (occurrence: None)
  Receive Date: 20080520
  Receipt Date: 20080519
  Transmission Date: 20081010
  Serious: Yes (Hospitalization)
  Sender: FDA-Public Use
  Company Number: CA-BRISTOL-MYERS SQUIBB COMPANY-13404207

PATIENT
  Age: 69 Year
  Sex: Male
  Weight: 57 kg

DRUGS (17)
  1. CARBOPLATIN [Suspect]
     Indication: NON-SMALL CELL LUNG CANCER
     Route: 042
     Dates: start: 20060328, end: 20060328
  2. PACLITAXEL [Suspect]
     Indication: NON-SMALL CELL LUNG CANCER
     Route: 042
     Dates: start: 20060328, end: 20060328
  3. CP-751,871 [Suspect]
     Indication: NON-SMALL CELL LUNG CANCER
     Route: 042
     Dates: start: 20060328, end: 20060328
  4. STATEX [Concomitant]
     Route: 048
     Dates: start: 20060206
  5. MS CONTIN [Concomitant]
     Route: 048
     Dates: start: 20060213
  6. MOTRIN [Concomitant]
     Route: 048
     Dates: start: 20060104
  7. COLACE [Concomitant]
     Route: 048
     Dates: start: 20060202
  8. MILK OF MAGNESIA [Concomitant]
     Route: 048
     Dates: start: 20060202
  9. TRUSOPT [Concomitant]
     Dates: start: 20030201
  10. KETOROLAC TROMETHAMINE [Concomitant]
     Dates: start: 20030201
  11. PREDNISOLONE ACETATE [Concomitant]
     Dates: start: 20030201
  12. PAMIDRONATE DISODIUM [Concomitant]
     Route: 042
     Dates: start: 20060209
  13. HERBAL PREPARATION [Concomitant]
     Route: 048
     Dates: start: 20030101
  14. STRESSTABS [Concomitant]
     Route: 048
     Dates: start: 20060308
  15. DEXAMETHASONE TAB [Concomitant]
     Route: 048
     Dates: start: 20060209, end: 20060707
  16. PROCHLORPERAZINE [Concomitant]
     Route: 048
     Dates: start: 20060209, end: 20060401
  17. METOCLOPRAMIDE [Concomitant]
     Route: 048
     Dates: start: 20060209, end: 20060401

REACTIONS (1)
  - DEHYDRATION [None]
